FAERS Safety Report 8985922 (Version 1)
Quarter: 2012Q4

REPORT INFORMATION
  Report Type: 
  Country: US (occurrence: US)
  Receive Date: 20121226
  Receipt Date: 20121226
  Transmission Date: 20130627
  Serious: Yes (Other)
  Sender: FDA-Public Use
  Company Number: US-BAYER-2012-132928

PATIENT
  Age: 30 Year
  Sex: Female

DRUGS (1)
  1. MIRENA [Suspect]
     Dosage: 20 mcg/24hr, CONT
     Route: 015
     Dates: start: 20090724, end: 201101

REACTIONS (6)
  - Device dislocation [None]
  - Peritoneal adhesions [None]
  - Ovarian cyst [None]
  - Emotional distress [None]
  - Injury [None]
  - Pain [None]
